FAERS Safety Report 5842020-6 (Version None)
Quarter: 2008Q3

REPORT INFORMATION
  Report Type: 
  Country: None (occurrence: None)
  Receive Date: 20080812
  Receipt Date: 20080807
  Transmission Date: 20090109
  Serious: Yes (Hospitalization)
  Sender: FDA-Public Use
  Company Number: FR-ASTRAZENECA-2008CG01193

PATIENT
  Age: 79 Year
  Sex: Female

DRUGS (6)
  1. MOPRAL [Suspect]
     Indication: PROPHYLAXIS AGAINST GASTROINTESTINAL ULCER
     Route: 048
  2. OCTREOTIDE ACETATE [Interacting]
     Indication: PANCREATIC FISTULA
     Route: 058
  3. PANTOPRAZOLE SODIUM [Interacting]
     Indication: PROPHYLAXIS AGAINST GASTROINTESTINAL ULCER
     Route: 042
  4. PANTOPRAZOLE SODIUM [Interacting]
     Route: 042
  5. CHOLESTYRAMINE [Interacting]
     Indication: PRURITUS
  6. LACTULOSE [Concomitant]
     Indication: CONSTIPATION

REACTIONS (2)
  - BEZOAR [None]
  - DRUG INTERACTION [None]
